FAERS Safety Report 21508118 (Version 2)
Quarter: 2022Q4

REPORT INFORMATION
  Report Type: Spontaneous
  Country: US (occurrence: US)
  Receive Date: 20221026
  Receipt Date: 20221122
  Transmission Date: 20230112
  Serious: Yes (Hospitalization, Disabling, Other)
  Sender: FDA-Public Use
  Company Number: US-009507513-2210USA008161

PATIENT
  Age: 54 Year
  Sex: Male
  Weight: 78.912 kg

DRUGS (13)
  1. VERQUVO [Suspect]
     Active Substance: VERICIGUAT
     Indication: Cardiac failure chronic
     Dosage: 2.5 MILLIGRAM, EVERY DAY (QD)
     Route: 048
     Dates: start: 20220630, end: 2022
  2. VERQUVO [Suspect]
     Active Substance: VERICIGUAT
     Dosage: 5 MILLIGRAM
     Route: 048
     Dates: start: 20220921, end: 2022
  3. VERQUVO [Suspect]
     Active Substance: VERICIGUAT
     Dosage: 10 MILLIGRAM
     Route: 048
     Dates: start: 2022
  4. ASPIRIN [Concomitant]
     Active Substance: ASPIRIN
     Dosage: 81 MILLIGRAM (MG)
     Dates: start: 20160916
  5. CYCLOBENZAPRINE [Concomitant]
     Active Substance: CYCLOBENZAPRINE
     Dosage: 10 MILLIGRAM (MG)
  6. FARXIGA [Concomitant]
     Active Substance: DAPAGLIFLOZIN PROPANEDIOL
     Dosage: 10 MILLIGRAM (MG)
  7. FUROSEMIDE [Concomitant]
     Active Substance: FUROSEMIDE
     Dosage: 40 MILLIGRAM (MG)
  8. ISOSORBIDE [Concomitant]
     Active Substance: ISOSORBIDE
     Dosage: 20-37.5 MILLIGRAM (MG)
  9. IVABRADINE [Concomitant]
     Active Substance: IVABRADINE
  10. VICTOZA [Concomitant]
     Active Substance: LIRAGLUTIDE
  11. METOLAZONE [Concomitant]
     Active Substance: METOLAZONE
     Dosage: 2.5 (UNIT NOT REPORTED)
  12. XARELTO [Concomitant]
     Active Substance: RIVAROXABAN
     Dosage: 20 MILLIGRAM (MG)
  13. SPIRONOLACTONE [Concomitant]
     Active Substance: SPIRONOLACTONE
     Dosage: 25 MILLIGRAM (MG)

REACTIONS (6)
  - Cerebrovascular accident [Not Recovered/Not Resolved]
  - Cerebral artery embolism [Unknown]
  - Embolic cerebral infarction [Unknown]
  - Cardiomyopathy [Unknown]
  - Cerebral infarction [Unknown]
  - Peripheral vascular disorder [Unknown]

NARRATIVE: CASE EVENT DATE: 20220721
